FAERS Safety Report 6154603-7 (Version None)
Quarter: 2009Q2

REPORT INFORMATION
  Report Type: 
  Country: None (occurrence: None)
  Receive Date: 20090414
  Receipt Date: 20090330
  Transmission Date: 20091009
  Serious: Yes (Hospitalization)
  Sender: FDA-Public Use
  Company Number: US-ROCHE-624785

PATIENT
  Sex: Male
  Weight: 114.3 kg

DRUGS (7)
  1. PEG-INTERFERON ALFA 2A (RO 25-8310) [Suspect]
     Dosage: AS PER PROTOCOL, DOSE IS 180 MCG ONCE EVERY WEEK FOR 48 WEEKS AND FORM IS INJECTABLE.
     Route: 058
     Dates: start: 20081226
  2. RIBAVIRIN [Suspect]
     Dosage: AS PER PROTOCOL, DOSE IS REPORTED TO BE 1200 MG TWO TIMES A DAY FOR 48 WEEKS.
     Route: 048
     Dates: start: 20081226
  3. BLINDED TELAPREVIR [Suspect]
     Dosage: FREQUENCY IS EVERY 8 HOURS FOR 16 WEEKS AS PER PROTOCOL.
     Route: 048
     Dates: start: 20081226, end: 20090319
  4. REQUIP [Concomitant]
  5. IRON [Concomitant]
  6. PRILOSEC [Concomitant]
  7. CAPOTEN [Concomitant]

REACTIONS (1)
  - JAUNDICE [None]
